FAERS Safety Report 6328844-X (Version None)
Quarter: 2009Q3

REPORT INFORMATION
  Report Type: 
  Country: None (occurrence: None)
  Receive Date: 20090826
  Receipt Date: 20090824
  Transmission Date: 20100115
  Serious: Yes (Other)
  Sender: FDA-Public Use
  Company Number: US-BRISTOL-MYERS SQUIBB COMPANY-14752091

PATIENT
  Age: 28 Year
  Sex: Female

DRUGS (3)
  1. REYATAZ [Suspect]
  2. RITONAVIR [Suspect]
  3. TRUVADA [Suspect]

REACTIONS (2)
  - ABORTION SPONTANEOUS [None]
  - PREGNANCY [None]
